FAERS Safety Report 13244534 (Version 2)
Quarter: 2020Q1

REPORT INFORMATION
  Report Type: Spontaneous
  Country: US (occurrence: US)
  Receive Date: 20170216
  Receipt Date: 20200121
  Transmission Date: 20200409
  Serious: No
  Sender: FDA-Public Use
  Company Number: US-JAZZ-2017-US-000385

PATIENT
  Sex: Female

DRUGS (18)
  1. XYREM [Suspect]
     Active Substance: SODIUM OXYBATE
     Indication: NARCOLEPSY
     Dosage: 4.5G, BID
     Route: 048
     Dates: start: 201405
  2. METOPROLOL TARTRATE. [Concomitant]
     Active Substance: METOPROLOL TARTRATE
  3. ERGOCALCIFEROL. [Concomitant]
     Active Substance: ERGOCALCIFEROL
  4. ACETYLSALICYLIC ACID [Concomitant]
     Active Substance: ASPIRIN
  5. CYCLOBENZAPRINE HYDROCHLORIDE. [Concomitant]
     Active Substance: CYCLOBENZAPRINE HYDROCHLORIDE
  6. LISINOPRIL. [Concomitant]
     Active Substance: LISINOPRIL
  7. CYANOCOBALAMIN. [Concomitant]
     Active Substance: CYANOCOBALAMIN
  8. KLONOPIN [Concomitant]
     Active Substance: CLONAZEPAM
  9. SPRINTEC [Concomitant]
     Active Substance: ETHINYL ESTRADIOL\NORGESTIMATE
  10. DOCUSATE SODIUM. [Concomitant]
     Active Substance: DOCUSATE SODIUM
  11. PROAIR HFA [Concomitant]
     Active Substance: ALBUTEROL SULFATE
  12. PREDNISONE ACETATE [Concomitant]
     Active Substance: PREDNISONE ACETATE
  13. ESOMEPRAZOLE MAGNESIUM. [Concomitant]
     Active Substance: ESOMEPRAZOLE MAGNESIUM
  14. ALBUTEROL SULFATE. [Concomitant]
     Active Substance: ALBUTEROL SULFATE
  15. LEVAQUIN [Concomitant]
     Active Substance: LEVOFLOXACIN
  16. REQUIP [Concomitant]
     Active Substance: ROPINIROLE HYDROCHLORIDE
  17. MOMETASONE FUROATE. [Concomitant]
     Active Substance: MOMETASONE FUROATE
  18. SPIRONOLACTONE. [Concomitant]
     Active Substance: SPIRONOLACTONE

REACTIONS (2)
  - Bronchitis [Not Recovered/Not Resolved]
  - Sinusitis [Not Recovered/Not Resolved]
